FAERS Safety Report 23034626 (Version 1)
Quarter: 2023Q4

REPORT INFORMATION
  Report Type: Spontaneous
  Country: CN (occurrence: CN)
  Receive Date: 20231005
  Receipt Date: 20231005
  Transmission Date: 20240109
  Serious: Yes (Other)
  Sender: FDA-Public Use
  Company Number: CN-JNJFOC-20230959684

PATIENT
  Age: 69 Year
  Sex: Male
  Weight: 70 kg

DRUGS (7)
  1. VELCADE [Suspect]
     Active Substance: BORTEZOMIB
     Indication: Plasma cell myeloma
     Dosage: UNK
     Route: 065
     Dates: start: 20230830
  2. DEXAMETHASONE [Suspect]
     Active Substance: DEXAMETHASONE
     Indication: Plasma cell myeloma
     Dosage: UNK
     Route: 065
     Dates: start: 20230830
  3. DARZALEX [Suspect]
     Active Substance: DARATUMUMAB
     Indication: Plasma cell myeloma
     Dosage: 400 MILLIGRAM, QD
     Route: 041
     Dates: start: 20230830
  4. DARZALEX [Suspect]
     Active Substance: DARATUMUMAB
     Dosage: 400 MILLIGRAM, QD
     Route: 041
     Dates: start: 20230831
  5. DARZALEX [Suspect]
     Active Substance: DARATUMUMAB
     Dosage: 400 MILLIGRAM, QD
     Route: 041
     Dates: start: 20230907
  6. DARZALEX [Suspect]
     Active Substance: DARATUMUMAB
     Dosage: 400 MILLIGRAM, QD
     Route: 041
     Dates: start: 20230908
  7. REVLIMID [Suspect]
     Active Substance: LENALIDOMIDE
     Indication: Plasma cell myeloma
     Dosage: UNK
     Route: 065
     Dates: start: 20230830

REACTIONS (4)
  - Asphyxia [Recovering/Resolving]
  - Infusion related reaction [Recovering/Resolving]
  - Cyanosis [Recovering/Resolving]
  - Chills [Recovering/Resolving]

NARRATIVE: CASE EVENT DATE: 20230830
